FAERS Safety Report 25099484 (Version 2)
Quarter: 2025Q1

REPORT INFORMATION
  Report Type: Spontaneous
  Country: CN (occurrence: CN)
  Receive Date: 20250320
  Receipt Date: 20250328
  Transmission Date: 20250408
  Serious: Yes (Other)
  Sender: NOVO NORDISK
  Company Number: CN-NOVOPROD-1387870

PATIENT
  Age: 47 Year
  Sex: Female
  Weight: 88 kg

DRUGS (4)
  1. LEVEMIR [Suspect]
     Active Substance: INSULIN DETEMIR
     Indication: Type 2 diabetes mellitus
     Dosage: 18 IU, QD
     Dates: start: 2020
  2. LEVEMIR [Suspect]
     Active Substance: INSULIN DETEMIR
     Dosage: 26 IU, QD
  3. OZEMPIC [Suspect]
     Active Substance: SEMAGLUTIDE
     Indication: Weight control
     Dates: start: 2022, end: 2024
  4. DAPAGLIFLOZIN [Concomitant]
     Active Substance: DAPAGLIFLOZIN
     Indication: Product used for unknown indication
     Route: 048

REACTIONS (3)
  - Autoimmune thyroiditis [Unknown]
  - Weight loss poor [Not Recovered/Not Resolved]
  - Off label use [Recovered/Resolved]

NARRATIVE: CASE EVENT DATE: 20220101
